FAERS Safety Report 20923873 (Version 1)
Quarter: 2022Q2

REPORT INFORMATION
  Report Type: Spontaneous
  Country: US (occurrence: None)
  Receive Date: 20220606
  Receipt Date: 20220606
  Transmission Date: 20220721
  Serious: No
  Sender: FDA-Public Use
  Company Number: None

PATIENT
  Age: 53 Year
  Sex: Female

DRUGS (1)
  1. CELEXA [Suspect]
     Active Substance: CITALOPRAM HYDROBROMIDE

REACTIONS (4)
  - Dermatitis atopic [None]
  - Loss of consciousness [None]
  - Fall [None]
  - Serotonin syndrome [None]

NARRATIVE: CASE EVENT DATE: 20220606
